FAERS Safety Report 9670155 (Version 2)
Quarter: 2013Q4

REPORT INFORMATION
  Report Type: Spontaneous
  Country: DK (occurrence: DK)
  Receive Date: 20131105
  Receipt Date: 20131210
  Transmission Date: 20140711
  Serious: Yes (Hospitalization)
  Sender: FDA-Public Use
  Company Number: PHHY2013DK121864

PATIENT
  Age: 77 Year
  Sex: Male
  Weight: 92 kg

DRUGS (6)
  1. METOPROLOLSUCCINAT HEXAL [Suspect]
     Indication: ARRHYTHMIA
     Dosage: 50 MG, QD
     Route: 048
     Dates: start: 20130601, end: 20130629
  2. FLECAINIDE STADA [Suspect]
     Indication: ARRHYTHMIA
     Dosage: 100 MG, BID
     Route: 048
     Dates: start: 20130601, end: 20130629
  3. PRADAXA [Concomitant]
     Indication: CEREBRAL THROMBOSIS
     Route: 048
     Dates: start: 201208
  4. DIURAL [Concomitant]
     Indication: DIURETIC THERAPY
     Route: 048
     Dates: start: 201208, end: 2013
  5. ELTROXIN [Concomitant]
     Indication: BLOOD THYROID STIMULATING HORMONE DECREASED
     Route: 048
     Dates: start: 201208
  6. ELTROXIN [Concomitant]
     Route: 048
     Dates: start: 201208

REACTIONS (3)
  - Muscle spasms [Recovered/Resolved]
  - Sinus bradycardia [Recovered/Resolved]
  - Dizziness [Recovered/Resolved]
